FAERS Safety Report 19494819 (Version 1)
Quarter: 2021Q3

REPORT INFORMATION
  Report Type: Spontaneous
  Country: NG (occurrence: NG)
  Receive Date: 20210705
  Receipt Date: 20210705
  Transmission Date: 20211014
  Serious: Yes (Life-Threatening, Other)
  Sender: FDA-Public Use
  Company Number: NG-SA-2021SA218940

PATIENT
  Age: 58 Year
  Sex: Female
  Weight: 86 kg

DRUGS (5)
  1. ONDASETRON [ONDANSETRON] [Concomitant]
     Active Substance: ONDANSETRON
     Dosage: 8 MG
  2. TAXOTERE [Suspect]
     Active Substance: DOCETAXEL
     Indication: BREAST CANCER FEMALE
     Dosage: 10 ML OF CONSTITUTED 120 MG TAXOTERE IN 500 ML OF NORMAL SALINE
     Route: 042
     Dates: start: 20210617, end: 20210617
  3. TAXOTERE [Suspect]
     Active Substance: DOCETAXEL
     Dosage: 20 UNK
     Route: 042
     Dates: start: 20210617, end: 20210617
  4. DEXAMETHASONE. [Concomitant]
     Active Substance: DEXAMETHASONE
     Dosage: 8 MG
     Route: 042
  5. TAXOTERE [Suspect]
     Active Substance: DOCETAXEL
     Dosage: 20 UNK
     Route: 042
     Dates: start: 20210617, end: 20210617

REACTIONS (5)
  - Oxygen saturation decreased [Recovered/Resolved]
  - Chest discomfort [Recovered/Resolved]
  - Dyspnoea [Recovered/Resolved]
  - Restlessness [Recovered/Resolved]
  - Loss of consciousness [Recovered/Resolved]

NARRATIVE: CASE EVENT DATE: 20210617
